FAERS Safety Report 11158531 (Version 1)
Quarter: 2015Q2

REPORT INFORMATION
  Report Type: Spontaneous
  Country: US (occurrence: US)
  Receive Date: 20150603
  Receipt Date: 20150603
  Transmission Date: 20150821
  Serious: No
  Sender: FDA-Public Use
  Company Number: US-SHIRE-US201504652

PATIENT
  Age: 13 Year
  Sex: Male
  Weight: 55.78 kg

DRUGS (3)
  1. VYVANSE [Suspect]
     Active Substance: LISDEXAMFETAMINE DIMESYLATE
     Dosage: 40 MG, 1X/DAY:QD
     Route: 048
     Dates: start: 20150408
  2. CYPROHEPTADINE. [Concomitant]
     Active Substance: CYPROHEPTADINE
     Indication: DECREASED APPETITE
     Dosage: 4 MG, 2X/DAY:BID
     Route: 048
     Dates: start: 2007
  3. VYVANSE [Suspect]
     Active Substance: LISDEXAMFETAMINE DIMESYLATE
     Indication: ATTENTION DEFICIT/HYPERACTIVITY DISORDER
     Dosage: 40 MG, 1X/DAY:QD
     Route: 048
     Dates: start: 2007, end: 201503

REACTIONS (3)
  - Sedation [Unknown]
  - Decreased appetite [Not Recovered/Not Resolved]
  - Educational problem [Recovered/Resolved]

NARRATIVE: CASE EVENT DATE: 201503
